FAERS Safety Report 9025936 (Version 1)
Quarter: 2013Q1

REPORT INFORMATION
  Report Type: Spontaneous
  Country: US (occurrence: US)
  Receive Date: 20130122
  Receipt Date: 20130122
  Transmission Date: 20140127
  Serious: Yes (Death, Other)
  Sender: FDA-Public Use
  Company Number: US-ASTRAZENECA-2013SE04153

PATIENT
  Age: 565 Day
  Sex: Female

DRUGS (1)
  1. SYNAGIS [Suspect]
     Route: 030
     Dates: start: 201201

REACTIONS (3)
  - Cardiac disorder [Fatal]
  - Dyspnoea [Unknown]
  - Viral infection [Unknown]
